FAERS Safety Report 8696827 (Version 4)
Quarter: 2013Q1

REPORT INFORMATION
  Report Type: Report from Study
  Country: US (occurrence: US)
  Receive Date: 20120801
  Receipt Date: 20130225
  Transmission Date: 20140127
  Serious: Yes (Hospitalization, Other)
  Sender: FDA-Public Use
  Company Number: US-ROCHE-1093604

PATIENT
  Age: 67 Year
  Sex: Female

DRUGS (2)
  1. VEMURAFENIB [Suspect]
     Indication: THYROID CANCER
     Dosage: DATE OF LAST DOSE: 23/JUL/2012, DOSE INTERRUPTED
     Route: 065
     Dates: start: 20120628, end: 20120724
  2. VEMURAFENIB [Suspect]
     Dosage: RESTARTED
     Route: 065
     Dates: start: 20120731

REACTIONS (1)
  - Dysphagia [Recovered/Resolved with Sequelae]
